FAERS Safety Report 8891642 (Version 1)
Quarter: 2012Q4

REPORT INFORMATION
  Report Type: 
  Country: US (occurrence: US)
  Receive Date: 20121107
  Receipt Date: 20121107
  Transmission Date: 20130627
  Serious: No
  Sender: FDA-Public Use
  Company Number: US-AMGEN-USASP2011056338

PATIENT
  Age: 78 Year
  Sex: Female

DRUGS (20)
  1. ENBREL [Suspect]
     Indication: PRODUCT USED FOR UNKNOWN INDICATION
     Dosage: 50 mg, qwk
  2. PROTONIX [Concomitant]
     Dosage: 40 mg, UNK
  3. XANAX [Concomitant]
     Dosage: 0.5 mg, UNK
  4. PLAQUENIL [Concomitant]
     Dosage: 200 mg, UNK
  5. VOLTAREN [Concomitant]
     Dosage: 50 mg, UNK
  6. PREDNISONE [Concomitant]
     Dosage: 2.5 mg, UNK
  7. BENTYL [Concomitant]
     Dosage: 20 mg, UNK
  8. NEURONTIN [Concomitant]
     Dosage: 600 mg, UNK
  9. VICODIN [Concomitant]
     Dosage: UNK
  10. DEPAKOTE [Concomitant]
     Dosage: 125 mg, UNK
  11. FENTANYL [Concomitant]
     Dosage: 25 mug, qh
  12. PROCHLORPERAZINE [Concomitant]
     Dosage: 5 mg, UNK
  13. IMITREX [Concomitant]
     Dosage: 5 mg, UNK
  14. ASPIRIN (E.C.) [Concomitant]
     Dosage: 81 mg, UNK
  15. ESTRADIOL [Concomitant]
     Dosage: 0.1 mg, UNK
  16. CALCIUM [Concomitant]
     Dosage: 600 mg, UNK
  17. MULTIVITAMIN [Concomitant]
     Dosage: UNK
  18. VITAMIN B12 [Concomitant]
     Dosage: 1000 mug, UNK
  19. FISH OIL [Concomitant]
     Dosage: UNK
  20. VITAMIN D [Concomitant]
     Dosage: UNK

REACTIONS (1)
  - Contusion [Unknown]
